FAERS Safety Report 10664041 (Version 1)
Quarter: 2014Q4

REPORT INFORMATION
  Report Type: Spontaneous
  Country: US (occurrence: None)
  Receive Date: 20141217
  Receipt Date: 20141217
  Transmission Date: 20150529
  Serious: Yes (Other)
  Sender: FDA-Public Use
  Company Number: DEP_02390_2014

PATIENT
  Sex: Male
  Weight: 68.04 kg

DRUGS (15)
  1. AMITRIPTYLINE [Concomitant]
     Active Substance: AMITRIPTYLINE
  2. FLUTICASONE PROPIONATE. [Concomitant]
     Active Substance: FLUTICASONE PROPIONATE
  3. TRAMADOL [Concomitant]
     Active Substance: TRAMADOL
  4. PAROXETIN /00830801/ [Concomitant]
     Active Substance: PAROXETINE HYDROCHLORIDE
  5. GRALISE [Suspect]
     Active Substance: GABAPENTIN
     Indication: SPINAL PAIN
     Dosage: STARTED PARK; TITRATED UP TO 1800 MG
     Route: 048
     Dates: start: 2013, end: 2013
  6. ZIAGEN [Concomitant]
     Active Substance: ABACAVIR SULFATE
  7. NITROSTAT [Concomitant]
     Active Substance: NITROGLYCERIN
  8. CRESTOR [Concomitant]
     Active Substance: ROSUVASTATIN CALCIUM
  9. PANTOPRAZOLE [Concomitant]
     Active Substance: PANTOPRAZOLE SODIUM
  10. GRALISE [Suspect]
     Active Substance: GABAPENTIN
     Indication: OFF LABEL USE
     Dosage: STARTED PARK; TITRATED UP TO 1800 MG
     Route: 048
     Dates: start: 2013, end: 2013
  11. POTASSIUM CITRATE. [Concomitant]
     Active Substance: POTASSIUM CITRATE
  12. D4T [Concomitant]
     Active Substance: STAVUDINE
  13. EPIVIR [Concomitant]
     Active Substance: LAMIVUDINE
  14. ATENOLOL. [Concomitant]
     Active Substance: ATENOLOL
  15. LISINOPRIL. [Concomitant]
     Active Substance: LISINOPRIL

REACTIONS (7)
  - Foot fracture [None]
  - Fracture nonunion [None]
  - Economic problem [None]
  - Osteoporosis [None]
  - Dysuria [None]
  - Arthralgia [None]
  - Benign prostatic hyperplasia [None]

NARRATIVE: CASE EVENT DATE: 2014
